FAERS Safety Report 6357044-2 (Version None)
Quarter: 2009Q3

REPORT INFORMATION
  Report Type: 
  Country: None (occurrence: None)
  Receive Date: 20090915
  Receipt Date: 20090624
  Transmission Date: 20100115
  Serious: No
  Sender: FDA-Public Use
  Company Number: US-ABBOTT-09P-163-0582271-00

PATIENT
  Sex: Female
  Weight: 49.94 kg

DRUGS (7)
  1. DEPAKOTE [Suspect]
     Indication: BIPOLAR DISORDER
     Route: 048
     Dates: start: 20090413, end: 20090501
  2. DEPAKOTE [Suspect]
     Route: 048
     Dates: start: 20090408
  3. DEPAKOTE [Suspect]
     Route: 048
     Dates: start: 20090616
  4. DEPAKOTE ER [Suspect]
     Indication: BIPOLAR DISORDER
     Dosage: CHEWED TABLETS IN AM AND PM
     Route: 048
     Dates: start: 20090501, end: 20090615
  5. RISPERDAL [Suspect]
     Indication: BIPOLAR DISORDER
     Dates: start: 20090401, end: 20090601
  6. RISPERDAL [Suspect]
     Dosage: UNKNOWN DOSE INCREASED BACK TO PRESCRIBED DOSE
     Dates: start: 20090601
  7. RISPERDAL [Suspect]
     Dosage: UNKNOWN DOSE DECREASED TO HALF DOSE
     Dates: start: 20090601, end: 20090601

REACTIONS (4)
  - DRUG LEVEL DECREASED [None]
  - FAECAL INCONTINENCE [None]
  - URINARY INCONTINENCE [None]
  - WRONG TECHNIQUE IN DRUG USAGE PROCESS [None]
